FAERS Safety Report 9299276 (Version 1)
Quarter: 2013Q2

REPORT INFORMATION
  Report Type: Spontaneous
  Country: US (occurrence: US)
  Receive Date: 20130520
  Receipt Date: 20130520
  Transmission Date: 20140414
  Serious: No
  Sender: FDA-Public Use
  Company Number: US-TEVA-406504USA

PATIENT
  Age: 45 Year
  Sex: Female
  Weight: 63.56 kg

DRUGS (4)
  1. PLAN B ONE-STEP [Suspect]
     Indication: POST COITAL CONTRACEPTION
     Dosage: 1.5 MILLIGRAM DAILY;
     Route: 048
     Dates: start: 20130423, end: 20130423
  2. CLONAZEPAM [Concomitant]
     Indication: ANXIETY
  3. SYNTHROID [Concomitant]
     Indication: AUTOIMMUNE THYROIDITIS
  4. IRON [Concomitant]
     Indication: IRON DEFICIENCY ANAEMIA

REACTIONS (3)
  - Abdominal pain lower [Not Recovered/Not Resolved]
  - Breast tenderness [Not Recovered/Not Resolved]
  - Menstruation irregular [Not Recovered/Not Resolved]
